FAERS Safety Report 9343380 (Version 2)
Quarter: 2013Q4

REPORT INFORMATION
  Report Type: Spontaneous
  Country: GB (occurrence: GB)
  Receive Date: 20130612
  Receipt Date: 20131029
  Transmission Date: 20140711
  Serious: Yes (Other)
  Sender: FDA-Public Use
  Company Number: GB-RANBAXY-2013R1-70087

PATIENT
  Age: 41 Year
  Sex: Male

DRUGS (1)
  1. RISPERIDONE [Suspect]
     Indication: PSYCHOTIC DISORDER
     Dosage: 4 MG, BID
     Route: 048

REACTIONS (4)
  - Accidental overdose [Unknown]
  - Extrapyramidal disorder [Unknown]
  - Deep vein thrombosis [Recovered/Resolved]
  - Mobility decreased [Unknown]
